FAERS Safety Report 8476947-6 (Version None)
Quarter: 2012Q2

REPORT INFORMATION
  Report Type: 
  Country: None (occurrence: None)
  Receive Date: 20120629
  Receipt Date: 20120621
  Transmission Date: 20120825
  Serious: Yes (Hospitalization)
  Sender: FDA-Public Use
  Company Number: US-BIOGENIDEC-2012BI022382

PATIENT
  Age: 44 Year
  Sex: Female

DRUGS (2)
  1. TYSABRI [Suspect]
     Indication: MULTIPLE SCLEROSIS
     Route: 042
     Dates: end: 20110721
  2. TYSABRI [Suspect]
     Route: 042
     Dates: start: 20111216

REACTIONS (2)
  - MULTIPLE SCLEROSIS [None]
  - TEMPERATURE INTOLERANCE [None]
